FAERS Safety Report 6674430-1 (Version None)
Quarter: 2010Q2

REPORT INFORMATION
  Report Type: 
  Country: None (occurrence: None)
  Receive Date: 20100409
  Receipt Date: 20100330
  Transmission Date: 20101027
  Serious: Yes (Hospitalization, Other)
  Sender: FDA-Public Use
  Company Number: PHHY2010US20291

PATIENT
  Sex: Female
  Weight: 40.9 kg

DRUGS (4)
  1. EXJADE [Suspect]
     Dosage: 250 MG, TID
     Route: 048
  2. FOLIC ACID [Concomitant]
     Dosage: 1 MG, QD
     Route: 048
  3. PENICILLIN [Concomitant]
     Dosage: 250 MG, BID
     Route: 048
  4. ASPIRIN [Concomitant]
     Dosage: 81 MG, QD
     Route: 048

REACTIONS (3)
  - HAEMORRHAGIC OVARIAN CYST [None]
  - PELVIC DISCOMFORT [None]
  - PELVIC PAIN [None]
